FAERS Safety Report 11714403 (Version 1)
Quarter: 2015Q4

REPORT INFORMATION
  Report Type: Spontaneous
  Country: US (occurrence: US)
  Receive Date: 20151109
  Receipt Date: 20151109
  Transmission Date: 20160304
  Serious: Yes (Hospitalization)
  Sender: FDA-Public Use
  Company Number: US-NOVOPROD-469459

PATIENT
  Age: 26 Year
  Sex: Female
  Weight: 99.77 kg

DRUGS (6)
  1. NOVOLOG [Suspect]
     Active Substance: INSULIN ASPART
     Indication: TYPE 2 DIABETES MELLITUS
     Dosage: 2 U, TID
     Route: 058
     Dates: start: 20151012
  2. NOVOLOG [Suspect]
     Active Substance: INSULIN ASPART
     Dosage: 5 U, TID
     Route: 058
     Dates: start: 201510
  3. NOVOLOG [Suspect]
     Active Substance: INSULIN ASPART
     Dosage: 12 U, TID
     Route: 058
     Dates: start: 201510
  4. LEVEMIR [Suspect]
     Active Substance: INSULIN DETEMIR
     Indication: TYPE 2 DIABETES MELLITUS
     Dosage: 20 U, QD AT NIGHT
     Route: 058
     Dates: start: 20151012
  5. LEVEMIR [Suspect]
     Active Substance: INSULIN DETEMIR
     Dosage: 45 U, QD AT NIGHT
     Route: 058
     Dates: start: 201510
  6. NOVOLOG [Suspect]
     Active Substance: INSULIN ASPART
     Dosage: 10 U, TID
     Route: 058
     Dates: start: 201510

REACTIONS (2)
  - Abortion spontaneous [Recovering/Resolving]
  - Exposure during pregnancy [Recovered/Resolved]

NARRATIVE: CASE EVENT DATE: 20151012
